FAERS Safety Report 9084088 (Version 2)
Quarter: 2013Q3

REPORT INFORMATION
  Report Type: Spontaneous
  Country: US (occurrence: US)
  Receive Date: 20130131
  Receipt Date: 20130819
  Transmission Date: 20140515
  Serious: Yes (Hospitalization, Other)
  Sender: FDA-Public Use
  Company Number: US-009507513-1301USA014053

PATIENT
  Sex: Female

DRUGS (10)
  1. FOSAMAX [Suspect]
     Indication: OSTEOPOROSIS
     Dosage: 70 MG, UNK
     Route: 048
     Dates: end: 2009
  2. FOSAMAX [Suspect]
     Dosage: 10 MG, UNK
     Route: 048
     Dates: start: 1995
  3. ALENDRONATE SODIUM [Suspect]
     Indication: OSTEOPOROSIS
     Dosage: 70 MG, UNK
     Route: 048
     Dates: end: 2009
  4. ALENDRONATE SODIUM [Suspect]
     Dosage: UNK
     Route: 048
     Dates: start: 1995
  5. OMEGA-3 MARINE TRIGLYCERIDES [Concomitant]
     Dosage: 1000 MG, QD
     Dates: start: 1991, end: 2011
  6. CALCIUM (UNSPECIFIED) [Concomitant]
     Dosage: 600 MG, QD
     Dates: start: 1991, end: 2011
  7. ASCORBIC ACID [Concomitant]
     Dosage: 400 MG, QD
     Dates: start: 1991, end: 2011
  8. PRILOSEC [Concomitant]
     Dosage: UNK
     Dates: start: 1996
  9. CYPROHEPTADINE HYDROCHLORIDE [Concomitant]
     Indication: HYPERSENSITIVITY
     Dosage: UNK
     Dates: start: 2006, end: 2006
  10. CALTRATE (CALCIUM CARBONATE) [Concomitant]
     Indication: OSTEOPOROSIS

REACTIONS (37)
  - Femur fracture [Unknown]
  - Intramedullary rod insertion [Unknown]
  - Femur fracture [Unknown]
  - Intramedullary rod insertion [Unknown]
  - Coronary artery disease [Unknown]
  - Coronary artery bypass [Unknown]
  - Procedural hypotension [Unknown]
  - Haemorrhagic anaemia [Unknown]
  - Hyponatraemia [Unknown]
  - Renal failure chronic [Not Recovered/Not Resolved]
  - Vertebroplasty [Unknown]
  - Depression [Not Recovered/Not Resolved]
  - Anxiety [Not Recovered/Not Resolved]
  - Anxiety [Unknown]
  - Hypothyroidism [Unknown]
  - Hypertension [Unknown]
  - Hypercholesterolaemia [Unknown]
  - Cardiac disorder [Unknown]
  - Pain [Unknown]
  - Intervertebral disc injury [Unknown]
  - Hysterectomy [Unknown]
  - Gastrointestinal disorder [Unknown]
  - Adverse event [Unknown]
  - Rhonchi [Unknown]
  - Osteoarthritis [Unknown]
  - Leukocytosis [Recovered/Resolved]
  - Hyperkalaemia [Recovered/Resolved]
  - Hyperglycaemia [Unknown]
  - Hyponatraemia [Unknown]
  - Malnutrition [Unknown]
  - Hypomagnesaemia [Unknown]
  - Hypophosphataemia [Unknown]
  - Back pain [Not Recovered/Not Resolved]
  - Constipation [Unknown]
  - Diarrhoea [Unknown]
  - Gastritis [Unknown]
  - Gastrooesophageal reflux disease [Unknown]
